FAERS Safety Report 8761347 (Version 1)
Quarter: 2012Q4

REPORT INFORMATION
  Report Type: 
  Country: GB (occurrence: GB)
  Receive Date: 20120830
  Receipt Date: 20120830
  Transmission Date: 20130627
  Serious: Yes (Hospitalization)
  Sender: FDA-Public Use
  Company Number: GB-PERRIGO-12GB007362

PATIENT
  Age: 47 Year

DRUGS (3)
  1. NAPROXEN 250MG 16028/0144 [Suspect]
     Indication: PAIN
     Dosage: 250 mg, bid
     Route: 048
     Dates: start: 20120612, end: 20120622
  2. CO-CODAMOL [Concomitant]
     Indication: PAIN
     Dosage: 1 DF, qid
     Route: 048
     Dates: start: 20120503
  3. TRAMADOL [Concomitant]
     Indication: PAIN
     Dosage: 80 mg, qid
     Route: 048
     Dates: start: 20120622

REACTIONS (3)
  - Gastrointestinal haemorrhage [Recovering/Resolving]
  - Abdominal discomfort [Recovering/Resolving]
  - Abdominal pain upper [Recovering/Resolving]
